FAERS Safety Report 15383851 (Version 6)
Quarter: 2019Q2

REPORT INFORMATION
  Report Type: Spontaneous
  Country: CA (occurrence: CA)
  Receive Date: 20180913
  Receipt Date: 20190626
  Transmission Date: 20190711
  Serious: Yes (Disabling, Other)
  Sender: FDA-Public Use
  Company Number: CA-BRISTOL-MYERS SQUIBB COMPANY-BMS-2018-082919

PATIENT
  Sex: Female
  Weight: 41 kg

DRUGS (21)
  1. ORENCIA [Suspect]
     Active Substance: ABATACEPT
     Indication: POLYARTHRITIS
     Route: 065
  2. LEFLUNOMIDE. [Suspect]
     Active Substance: LEFLUNOMIDE
     Indication: POLYARTHRITIS
     Dosage: UNK
     Route: 065
  3. ADALIMUMAB [Suspect]
     Active Substance: ADALIMUMAB
     Indication: POLYARTHRITIS
     Dosage: 40 MILLIGRAM, QWK
     Route: 058
  4. ORENCIA [Suspect]
     Active Substance: ABATACEPT
     Indication: JUVENILE IDIOPATHIC ARTHRITIS
     Dosage: UNK
     Route: 065
  5. PLAQUENIL [Suspect]
     Active Substance: HYDROXYCHLOROQUINE SULFATE
     Indication: POLYARTHRITIS
     Dosage: UNK
     Route: 065
  6. ENBREL [Suspect]
     Active Substance: ETANERCEPT
     Indication: POLYARTHRITIS
     Route: 065
  7. INFLIXIMAB [Suspect]
     Active Substance: INFLIXIMAB
     Indication: JUVENILE IDIOPATHIC ARTHRITIS
     Dosage: 200 MILLIGRAM, QMO
     Route: 042
     Dates: start: 201408, end: 201409
  8. HYDROXYCHLOROQUINE PHOSPHATE [Suspect]
     Active Substance: HYDROXYCHLOROQUINE DIPHOSPHATE
     Indication: POLYARTHRITIS
     Dosage: UNK
     Route: 065
  9. ADALIMUMAB [Suspect]
     Active Substance: ADALIMUMAB
     Indication: JUVENILE IDIOPATHIC ARTHRITIS
     Route: 065
  10. METHOTREXATE. [Suspect]
     Active Substance: METHOTREXATE
     Indication: POLYARTHRITIS
     Dosage: 15 MILLIGRAM/SQ. METER, QWK
     Route: 058
     Dates: start: 20080918, end: 2013
  11. TOCILIZUMAB. [Suspect]
     Active Substance: TOCILIZUMAB
     Indication: JUVENILE IDIOPATHIC ARTHRITIS
     Dosage: UNK
     Route: 065
  12. ABATACEPT [Suspect]
     Active Substance: ABATACEPT
     Indication: POLYARTHRITIS
     Dosage: UNK
     Route: 065
  13. HUMIRA [Suspect]
     Active Substance: ADALIMUMAB
     Indication: PRODUCT USED FOR UNKNOWN INDICATION
     Dosage: 40 MILLIGRAM, Q2WK
     Route: 058
  14. INFLIXIMAB [Suspect]
     Active Substance: INFLIXIMAB
     Indication: POLYARTHRITIS
     Dosage: 200 MILLIGRAM, QWK
     Route: 042
  15. SULFASALAZINE. [Suspect]
     Active Substance: SULFASALAZINE
     Indication: POLYARTHRITIS
     Dosage: UNK
     Route: 065
  16. TOCILIZUMAB. [Suspect]
     Active Substance: TOCILIZUMAB
     Indication: POLYARTHRITIS
     Route: 065
  17. ACTEMRA [Suspect]
     Active Substance: TOCILIZUMAB
     Indication: POLYARTHRITIS
     Dosage: UNK
     Route: 065
  18. ENBREL [Suspect]
     Active Substance: ETANERCEPT
     Indication: JUVENILE IDIOPATHIC ARTHRITIS
     Dosage: 15 MILLIGRAM, QWK
     Route: 058
     Dates: start: 20090101, end: 20100902
  19. HUMIRA [Suspect]
     Active Substance: ADALIMUMAB
     Indication: PRODUCT USED FOR UNKNOWN INDICATION
     Dosage: 40 MILLIGRAM, QWK
     Route: 058
     Dates: start: 201105, end: 201406
  20. RITUXIMAB. [Suspect]
     Active Substance: RITUXIMAB
     Indication: POLYARTHRITIS
     Dosage: 420 MILLIGRAM
     Route: 042
     Dates: start: 201105, end: 201105
  21. RITUXIMAB. [Suspect]
     Active Substance: RITUXIMAB
     Indication: JUVENILE IDIOPATHIC ARTHRITIS
     Route: 065

REACTIONS (30)
  - Physical disability [Not Recovered/Not Resolved]
  - Mean cell volume decreased [Not Recovered/Not Resolved]
  - Rheumatoid arthritis [Not Recovered/Not Resolved]
  - Off label use [Not Recovered/Not Resolved]
  - Drug ineffective [Not Recovered/Not Resolved]
  - Platelet count increased [Not Recovered/Not Resolved]
  - Red blood cell sedimentation rate abnormal [Not Recovered/Not Resolved]
  - General physical health deterioration [Not Recovered/Not Resolved]
  - Joint destruction [Not Recovered/Not Resolved]
  - Red cell distribution width decreased [Not Recovered/Not Resolved]
  - Vascular access complication [Not Recovered/Not Resolved]
  - Product use issue [Not Recovered/Not Resolved]
  - White blood cell count increased [Not Recovered/Not Resolved]
  - Osteoarthritis [Not Recovered/Not Resolved]
  - C-reactive protein increased [Not Recovered/Not Resolved]
  - Red blood cell sedimentation rate increased [Not Recovered/Not Resolved]
  - Red cell distribution width increased [Not Recovered/Not Resolved]
  - Arthropathy [Not Recovered/Not Resolved]
  - Deformity [Not Recovered/Not Resolved]
  - Joint effusion [Not Recovered/Not Resolved]
  - Mean platelet volume decreased [Not Recovered/Not Resolved]
  - Monocyte count increased [Not Recovered/Not Resolved]
  - Treatment failure [Not Recovered/Not Resolved]
  - Mean cell haemoglobin decreased [Not Recovered/Not Resolved]
  - Juvenile idiopathic arthritis [Not Recovered/Not Resolved]
  - Musculoskeletal deformity [Not Recovered/Not Resolved]
  - Pain [Not Recovered/Not Resolved]
  - Infusion site reaction [Not Recovered/Not Resolved]
  - Arthritis [Not Recovered/Not Resolved]
  - Disability [Not Recovered/Not Resolved]

NARRATIVE: CASE EVENT DATE: 2014
